FAERS Safety Report 17553543 (Version 1)
Quarter: 2020Q1

REPORT INFORMATION
  Report Type: Spontaneous
  Country: US (occurrence: US)
  Receive Date: 20200317
  Receipt Date: 20200317
  Transmission Date: 20200409
  Serious: Yes (Hospitalization)
  Sender: FDA-Public Use
  Company Number: US-VERTEX PHARMACEUTICALS-2018-009914

PATIENT
  Sex: Female
  Weight: 49 kg

DRUGS (17)
  1. AZTREONAM. [Concomitant]
     Active Substance: AZTREONAM
     Indication: BACTERIAL DISEASE CARRIER
     Dosage: 75 MG, TID
     Route: 048
     Dates: start: 20110913
  2. DORNASE ALFA. [Concomitant]
     Active Substance: DORNASE ALFA
     Indication: CYSTIC FIBROSIS
     Dosage: 2.5 MG, QD
     Dates: start: 20000912
  3. TOBRAMYCIN. [Concomitant]
     Active Substance: TOBRAMYCIN
     Indication: BACTERIAL DISEASE CARRIER
     Dosage: 300 MG NEB, BID (CYCLED 28 DAYS ON, 28 DAYS OFF
     Dates: start: 19991123, end: 20181218
  4. CREON [Concomitant]
     Active Substance: PANCRELIPASE AMYLASE\PANCRELIPASE LIPASE\PANCRELIPASE PROTEASE
     Indication: PANCREATIC FAILURE
     Dosage: 24K, 2-5 CAPSULES WITH MEALS, 203 CAPSULES WITH SNACCKS
     Route: 048
  5. SYMDEKO [Suspect]
     Active Substance: IVACAFTOR\TEZACAFTOR
     Indication: CYSTIC FIBROSIS
     Dosage: 1 YELLOW TABLET AM, 1 BLUE TABLET PM
     Route: 048
     Dates: start: 20180920
  6. MIRTAZAPINE. [Concomitant]
     Active Substance: MIRTAZAPINE
     Dosage: 30 MG QHS
     Route: 048
     Dates: start: 20180730
  7. LANSOPRAZOLE. [Concomitant]
     Active Substance: LANSOPRAZOLE
     Indication: GASTROOESOPHAGEAL REFLUX DISEASE
     Dosage: 15 MG, BID
     Route: 048
     Dates: start: 20120821
  8. SODIUM CHLORIDE. [Concomitant]
     Active Substance: SODIUM CHLORIDE
     Indication: AIRWAY SECRETION CLEARANCE THERAPY
     Dosage: 4 MILLILITER, BID
     Dates: start: 20110111
  9. ONDANSETRON [Concomitant]
     Active Substance: ONDANSETRON
     Indication: NAUSEA
     Dosage: 4 MG, TID PRN
     Dates: start: 20190131
  10. ALBUTEROL [SALBUTAMOL] [Concomitant]
     Active Substance: ALBUTEROL
     Dosage: 0.63 MILLIGRAM, TID PRN
     Dates: start: 20060214
  11. ZANTAC [Concomitant]
     Active Substance: RANITIDINE HYDROCHLORIDE
     Indication: VOMITING
  12. QVAR REDIHALER [Concomitant]
     Active Substance: BECLOMETHASONE DIPROPIONATE
     Indication: ASTHMA
     Dosage: 80 MICROGRAM/ ACTUATION 2 PUFFS INHALED BID
  13. ONDANSETRON [Concomitant]
     Active Substance: ONDANSETRON
     Indication: VOMITING
  14. MIRALAX [Concomitant]
     Active Substance: POLYETHYLENE GLYCOL 3350
     Indication: CONSTIPATION
     Dosage: 17 MG, QD
     Route: 048
  15. CITALOPRAM [Concomitant]
     Active Substance: CITALOPRAM HYDROBROMIDE
     Indication: DEPRESSION
     Dosage: 10 MG, QD
     Route: 048
  16. ZANTAC [Concomitant]
     Active Substance: RANITIDINE HYDROCHLORIDE
     Indication: NAUSEA
     Dosage: 150 MG, BID
     Route: 048
     Dates: start: 20190131
  17. INSULIN LISPRO [Concomitant]
     Active Substance: INSULIN LISPRO
     Indication: CYSTIC FIBROSIS RELATED DIABETES
     Dosage: SLIDING SCALE- INJECT UPTO 20 UNITS DAILY

REACTIONS (6)
  - Vomiting [Unknown]
  - Weight decreased [Unknown]
  - Nausea [Unknown]
  - Premature labour [Unknown]
  - Induced labour [Unknown]
  - Exposure during pregnancy [Unknown]

NARRATIVE: CASE EVENT DATE: 2018
